FAERS Safety Report 25152933 (Version 1)
Quarter: 2025Q2

REPORT INFORMATION
  Report Type: Spontaneous
  Country: US (occurrence: US)
  Receive Date: 20250403
  Receipt Date: 20250403
  Transmission Date: 20250716
  Serious: No
  Sender: BRISTOL MYERS SQUIBB
  Company Number: US-BRISTOL-MYERS SQUIBB COMPANY-2025-044107

PATIENT
  Age: 57 Year
  Sex: Female

DRUGS (2)
  1. ELIQUIS [Suspect]
     Active Substance: APIXABAN
     Indication: Thrombosis
     Route: 048
     Dates: start: 20250318
  2. ELIQUIS [Suspect]
     Active Substance: APIXABAN
     Indication: Swelling

REACTIONS (4)
  - Swelling [Unknown]
  - Blood viscosity increased [Unknown]
  - Skin odour abnormal [Unknown]
  - Wound secretion [Unknown]

NARRATIVE: CASE EVENT DATE: 20250319
